FAERS Safety Report 6600999-9 (Version None)
Quarter: 2010Q1

REPORT INFORMATION
  Report Type: 
  Country: None (occurrence: None)
  Receive Date: 20100225
  Receipt Date: 20100216
  Transmission Date: 20100710
  Serious: Yes (Hospitalization)
  Sender: FDA-Public Use
  Company Number: JP-JNJFOC-20100207825

PATIENT
  Age: 90 Year
  Sex: Female

DRUGS (2)
  1. FINIBAX [Suspect]
     Indication: PNEUMONIA
     Route: 041
  2. CEFTAZIDIME [Suspect]
     Indication: PNEUMONIA

REACTIONS (1)
  - RENAL FAILURE ACUTE [None]
